FAERS Safety Report 4333376-4 (Version None)
Quarter: 2004Q2

REPORT INFORMATION
  Report Type: 
  Country: None (occurrence: None)
  Receive Date: 20040401
  Receipt Date: 20040320
  Transmission Date: 20050107
  Serious: Yes (Hospitalization)
  Sender: FDA-Public Use
  Company Number: 2004019054

PATIENT
  Age: 18 Year
  Sex: Female

DRUGS (4)
  1. BENADRYL [Suspect]
     Indication: SUNBURN
     Dosage: ORAL
     Route: 048
  2. BENADRYL [Suspect]
     Indication: SUNBURN
     Dosage: TOPICAL
     Route: 061
  3. DIPHENHYDRAMINE HCL [Suspect]
     Indication: HYPERSENSITIVITY
     Dosage: INTRAVENOUS
     Route: 042
  4. EPINEPHRINE [Suspect]
     Indication: HYPERSENSITIVITY
     Dosage: INTRAMUSCULAR
     Route: 030

REACTIONS (1)
  - HYPERSENSITIVITY [None]
